FAERS Safety Report 26012457 (Version 1)
Quarter: 2025Q4

REPORT INFORMATION
  Report Type: Spontaneous
  Country: US (occurrence: None)
  Receive Date: 20251107
  Receipt Date: 20251107
  Transmission Date: 20260118
  Serious: No
  Sender: FDA-CTU
  Company Number: None

PATIENT
  Age: 45 Year
  Sex: Female

DRUGS (11)
  1. XOLAIR [Suspect]
     Active Substance: OMALIZUMAB
     Dosage: INJECT 2 ML ( 300 MG) UNDER THE SKIN EVERY 4 WEEKS
  2. ACYCLOVIR [Concomitant]
     Active Substance: ACYCLOVIR
  3. AZITHROMYCIN [Concomitant]
     Active Substance: AZITHROMYCIN
  4. CYCLOBENZAPR TAB 10MG [Concomitant]
  5. DEXAMETHASON ELX 0.5/5ML [Concomitant]
  6. FAMOTIDINE [Concomitant]
     Active Substance: FAMOTIDINE
  7. HYDROXYCHLOROQUINE [Concomitant]
     Active Substance: HYDROXYCHLOROQUINE
  8. LEVOCETIRIZI TAB SMG [Concomitant]
  9. MELOXICAM [Concomitant]
     Active Substance: MELOXICAM
  10. METHYLPR SS INJ 125MG [Concomitant]
  11. METHYLPRED TAB 4MG [Concomitant]

REACTIONS (2)
  - Cardiovascular disorder [None]
  - Inflammation [None]

NARRATIVE: CASE EVENT DATE: 20251106
